FAERS Safety Report 13858179 (Version 1)
Quarter: 2017Q3

REPORT INFORMATION
  Report Type: Spontaneous
  Country: US (occurrence: US)
  Receive Date: 20170811
  Receipt Date: 20170811
  Transmission Date: 20171127
  Serious: Yes (Other)
  Sender: FDA-Public Use
  Company Number: US-BEH-2017082676

PATIENT
  Age: 64 Year
  Sex: Female

DRUGS (1)
  1. PRIVIGEN [Suspect]
     Active Substance: HUMAN IMMUNOGLOBULIN G
     Indication: IMMUNODEFICIENCY COMMON VARIABLE
     Dosage: 40 G, QMT
     Route: 042

REACTIONS (2)
  - Pneumonia [Unknown]
  - Spinal operation [Recovering/Resolving]

NARRATIVE: CASE EVENT DATE: 2017
